FAERS Safety Report 15388885 (Version 1)
Quarter: 2018Q3

REPORT INFORMATION
  Report Type: Report from Study
  Country: US (occurrence: US)
  Receive Date: 20180916
  Receipt Date: 20180916
  Transmission Date: 20181010
  Serious: No
  Sender: FDA-Public Use
  Company Number: PHHY2018US096963

PATIENT
  Age: 58 Year
  Sex: Male

DRUGS (2)
  1. COSENTYX [Suspect]
     Active Substance: SECUKINUMAB
     Indication: PSORIATIC ARTHROPATHY
     Dosage: 300 MG, QMO (2 PENS)
     Route: 058
     Dates: start: 20180130
  2. COSENTYX [Suspect]
     Active Substance: SECUKINUMAB
     Indication: PSORIASIS

REACTIONS (3)
  - Pruritus [Unknown]
  - Skin exfoliation [Unknown]
  - Drug ineffective [Recovering/Resolving]
